FAERS Safety Report 5052211-2 (Version None)
Quarter: 2006Q2

REPORT INFORMATION
  Report Type: 
  Country: None (occurrence: None)
  Receive Date: 20060614
  Receipt Date: 20060316
  Transmission Date: 20061013
  Serious: Yes (Other)
  Sender: FDA-Public Use
  Company Number: 440709

PATIENT
  Age: 77 Year
  Sex: Female
  Weight: 61.7 kg

DRUGS (5)
  1. BONIVA [Suspect]
     Indication: OSTEOPOROSIS
     Dosage: 1 PER MONTH ORAL
     Route: 048
     Dates: start: 20060102, end: 20060301
  2. THYROID TAB [Concomitant]
  3. LISINOPRIL/HYDROCHLOROTHIAZIDE (HYDROCHLOROTHIAZIDE/LISINOPRIL) [Concomitant]
  4. KLOR-CON [Concomitant]
  5. CLONIDINE [Concomitant]

REACTIONS (1)
  - ALOPECIA [None]
